FAERS Safety Report 15752583 (Version 3)
Quarter: 2019Q1

REPORT INFORMATION
  Report Type: Report from Study
  Country: None (occurrence: US)
  Receive Date: 20181221
  Receipt Date: 20190318
  Transmission Date: 20190417
  Serious: Yes (Death)
  Sender: FDA-Public Use
  Company Number: US-VIFOR (INTERNATIONAL) INC.-VIT-2018-12622

PATIENT
  Age: 73 Year
  Sex: Female
  Weight: 83.08 kg

DRUGS (1)
  1. VELTASSA [Suspect]
     Active Substance: PATIROMER
     Indication: HYPERKALAEMIA
     Route: 048
     Dates: start: 20170509

REACTIONS (1)
  - Death [Fatal]

NARRATIVE: CASE EVENT DATE: 20180528
